FAERS Safety Report 13617943 (Version 1)
Quarter: 2017Q2

REPORT INFORMATION
  Report Type: Report from Study
  Country: None (occurrence: US)
  Receive Date: 20170606
  Receipt Date: 20170606
  Transmission Date: 20170830
  Serious: Yes (Other)
  Sender: FDA-Public Use
  Company Number: US-ABBVIE-17P-163-1951998-00

PATIENT
  Age: 53 Year
  Sex: Female

DRUGS (2)
  1. LISINOPRIL. [Concomitant]
     Active Substance: LISINOPRIL
     Indication: PRODUCT USED FOR UNKNOWN INDICATION
  2. VIEKIRA XR [Suspect]
     Active Substance: DASABUVIR SODIUM MONOHYDRATE\OMBITASVIR HEMINONAHYDRATE\PARITAPREVIR DIHYDRATE\RITONAVIR
     Indication: HEPATITIS C
     Route: 048
     Dates: start: 20170320

REACTIONS (4)
  - Constipation [Not Recovered/Not Resolved]
  - Abdominal pain [Not Recovered/Not Resolved]
  - Rectal haemorrhage [Unknown]
  - Haemorrhoids [Not Recovered/Not Resolved]

NARRATIVE: CASE EVENT DATE: 20170405
